FAERS Safety Report 5047809-1 (Version None)
Quarter: 2006Q2

REPORT INFORMATION
  Report Type: 
  Country: None (occurrence: None)
  Receive Date: 20060601
  Receipt Date: 20060320
  Transmission Date: 20061013
  Serious: No
  Sender: FDA-Public Use
  Company Number: 2006PV010528

PATIENT
  Age: 59 Year
  Sex: Female
  Weight: 97.5234 kg

DRUGS (4)
  1. BYETTA [Suspect]
     Indication: DIABETES MELLITUS NON-INSULIN-DEPENDENT
     Dosage: 5 MCG;BID;SC
     Route: 058
     Dates: start: 20050801
  2. GLYBURIDE [Concomitant]
  3. METFORMIN HCL [Concomitant]
  4. ACTOS [Concomitant]

REACTIONS (5)
  - BLOOD GLUCOSE FLUCTUATION [None]
  - DECREASED APPETITE [None]
  - DRUG INEFFECTIVE FOR UNAPPROVED INDICATION [None]
  - NAUSEA [None]
  - WEIGHT DECREASED [None]
